FAERS Safety Report 7051770-8 (Version None)
Quarter: 2010Q4

REPORT INFORMATION
  Report Type: 
  Country: None (occurrence: None)
  Receive Date: 20101019
  Receipt Date: 20101011
  Transmission Date: 20110411
  Serious: Yes (Hospitalization)
  Sender: FDA-Public Use
  Company Number: AU-ELI_LILLY_AND_COMPANY-AU201009006855

PATIENT
  Sex: Female

DRUGS (8)
  1. GEMCITABINE HCL [Suspect]
     Indication: PANCREATIC CARCINOMA
     Dosage: 1000 MG/M2, UNKNOWN
     Route: 065
     Dates: start: 20100728
  2. ROXITHROMYCIN [Concomitant]
     Indication: SPLENECTOMY
     Dosage: UNK, UNK
     Route: 048
     Dates: start: 20100201
  3. ATORVASTATIN [Concomitant]
     Indication: HYPERCHOLESTEROLAEMIA
     Dosage: UNK, UNK
     Route: 048
     Dates: start: 20050101, end: 20100825
  4. PANCREATIN [Concomitant]
     Indication: PANCREATECTOMY
     Route: 048
     Dates: start: 20100201
  5. NOVORAPID [Concomitant]
     Indication: PANCREATECTOMY
     Route: 058
     Dates: start: 20100201
  6. INSULIN GLARGINE [Concomitant]
     Route: 058
     Dates: start: 20100201
  7. OXYCODONE HCL [Concomitant]
     Route: 048
     Dates: start: 20100623
  8. ENOXAPARIN SODIUM [Concomitant]
     Route: 058
     Dates: start: 20100724

REACTIONS (1)
  - COLITIS [None]
